FAERS Safety Report 9771897 (Version 2)
Quarter: 2013Q4

REPORT INFORMATION
  Report Type: Spontaneous
  Country: US (occurrence: None)
  Receive Date: 20130930
  Receipt Date: 20131004
  Transmission Date: 20140711
  Serious: Yes (Death)
  Sender: FDA-Public Use
  Company Number: ADR-2008-4494

PATIENT
  Age: 61 Year
  Sex: Male

DRUGS (5)
  1. COMPOUNDED BACLOFEN 400.0 MCG [Suspect]
     Indication: MUSCLE SPASTICITY
     Route: 037
  2. HYDROMORPHONE (INTRATHECAL) - 20MG/ML [Concomitant]
  3. BUPIVACAINE [Concomitant]
  4. KETAMINE [Concomitant]
  5. DROPERIDOL [Concomitant]

REACTIONS (3)
  - Medical device complication [None]
  - Abdominal pain [None]
  - Drug effect decreased [None]
